FAERS Safety Report 10133430 (Version 2)
Quarter: 2014Q2

REPORT INFORMATION
  Report Type: Spontaneous
  Country: NL (occurrence: NL)
  Receive Date: 20140428
  Receipt Date: 20140513
  Transmission Date: 20141212
  Serious: Yes (Other)
  Sender: FDA-Public Use
  Company Number: GB-BRISTOL-MYERS SQUIBB COMPANY-20673190

PATIENT
  Age: 46 Year
  Sex: Male
  Weight: 90 kg

DRUGS (2)
  1. ABILIFY TABS 15 MG [Suspect]
     Indication: SCHIZOAFFECTIVE DISORDER
     Dates: start: 2011
  2. THYRAX [Concomitant]
     Dates: start: 2004

REACTIONS (2)
  - Subacute cutaneous lupus erythematosus [Not Recovered/Not Resolved]
  - Off label use [Unknown]
